FAERS Safety Report 21140758 (Version 1)
Quarter: 2022Q3

REPORT INFORMATION
  Report Type: Spontaneous
  Country: US (occurrence: US)
  Receive Date: 20220728
  Receipt Date: 20220728
  Transmission Date: 20221027
  Serious: Yes (Death, Hospitalization, Other)
  Sender: FDA-Public Use
  Company Number: US-LUPIN PHARMACEUTICALS INC.-2022-09825

PATIENT
  Age: 15 Year
  Sex: Male

DRUGS (1)
  1. HYDROCORTISONE [Suspect]
     Active Substance: HYDROCORTISONE
     Indication: Thyrotoxic crisis
     Dosage: UNK
     Route: 065

REACTIONS (3)
  - Ventricular tachycardia [Fatal]
  - Drug ineffective for unapproved indication [Fatal]
  - Off label use [Unknown]
